FAERS Safety Report 8289166-3 (Version None)
Quarter: 2012Q2

REPORT INFORMATION
  Report Type: 
  Country: None (occurrence: None)
  Receive Date: 20120417
  Receipt Date: 20120403
  Transmission Date: 20120825
  Serious: Yes (Other)
  Sender: FDA-Public Use
  Company Number: PHHY2011CA32260

PATIENT
  Sex: Female

DRUGS (1)
  1. GLEEVEC [Suspect]
     Indication: CHRONIC MYELOID LEUKAEMIA
     Dosage: UNK UKN, UNK
     Route: 048
     Dates: start: 20080101, end: 20090101

REACTIONS (5)
  - FLUSHING [None]
  - DRUG INTOLERANCE [None]
  - ANGIOPATHY [None]
  - RAYNAUD'S PHENOMENON [None]
  - SKIN REACTION [None]
